FAERS Safety Report 18965120 (Version 1)
Quarter: 2021Q1

REPORT INFORMATION
  Report Type: Spontaneous
  Country: TW (occurrence: TW)
  Receive Date: 20210303
  Receipt Date: 20210303
  Transmission Date: 20210420
  Serious: Yes (Hospitalization)
  Sender: FDA-Public Use
  Company Number: NVSC2021TW045995

PATIENT
  Age: 51 Year
  Sex: Female

DRUGS (1)
  1. TEGRETOL XR [Suspect]
     Active Substance: CARBAMAZEPINE
     Indication: TRIGEMINAL NEURALGIA
     Dosage: UNK
     Route: 048
     Dates: start: 20180309, end: 20180420

REACTIONS (2)
  - Rash [Unknown]
  - Hepatitis [Recovering/Resolving]
